FAERS Safety Report 6557604-X (Version None)
Quarter: 2010Q1

REPORT INFORMATION
  Report Type: 
  Country: None (occurrence: None)
  Receive Date: 20100129
  Receipt Date: 20100115
  Transmission Date: 20100710
  Serious: Yes (Other)
  Sender: FDA-Public Use
  Company Number: PHHY2010JP03034

PATIENT
  Age: 70 Year
  Sex: Female

DRUGS (1)
  1. LOCOL [Suspect]
     Indication: HYPERCHOLESTEROLAEMIA
     Dosage: 20 MG/DAY
     Route: 048
     Dates: start: 20091114, end: 20091219

REACTIONS (7)
  - ALANINE AMINOTRANSFERASE INCREASED [None]
  - ASPARTATE AMINOTRANSFERASE INCREASED [None]
  - BLOOD ALKALINE PHOSPHATASE INCREASED [None]
  - BLOOD LACTATE DEHYDROGENASE INCREASED [None]
  - GAMMA-GLUTAMYLTRANSFERASE INCREASED [None]
  - LIVER DISORDER [None]
  - LOW DENSITY LIPOPROTEIN INCREASED [None]
